FAERS Safety Report 7463434-7 (Version None)
Quarter: 2011Q2

REPORT INFORMATION
  Report Type: 
  Country: None (occurrence: None)
  Receive Date: 20110506
  Receipt Date: 20110429
  Transmission Date: 20111010
  Serious: Yes (Other)
  Sender: FDA-Public Use
  Company Number: B0716568A

PATIENT
  Age: 68 Year
  Sex: Male

DRUGS (3)
  1. ISENTRESS [Concomitant]
     Indication: HIV INFECTION
     Route: 048
     Dates: start: 20110401, end: 20110401
  2. VIREAD [Concomitant]
     Route: 048
  3. SELZENTRY [Suspect]
     Indication: HIV INFECTION
     Route: 048
     Dates: start: 20110401, end: 20110401

REACTIONS (2)
  - MALAISE [None]
  - VOMITING [None]
